FAERS Safety Report 17132560 (Version 8)
Quarter: 2021Q1

REPORT INFORMATION
  Report Type: Report from Study
  Country: BE (occurrence: BE)
  Receive Date: 20191210
  Receipt Date: 20210326
  Transmission Date: 20210419
  Serious: Yes (Hospitalization, Other)
  Sender: FDA-Public Use
  Company Number: BE-ASPEN-GLO2019BE012856

PATIENT

DRUGS (44)
  1. BISOPROLOL [Concomitant]
     Active Substance: BISOPROLOL
     Indication: ATRIAL FIBRILLATION
     Dosage: 5 MILLIGRAM
     Route: 065
     Dates: start: 20180526, end: 20180605
  2. METHYLPREDNISOLONE. [Concomitant]
     Active Substance: METHYLPREDNISOLONE
     Dosage: 8 MILLIGRAM
     Route: 065
     Dates: start: 20180618, end: 20180621
  3. TILDIEM [Concomitant]
     Active Substance: DILTIAZEM HYDROCHLORIDE
     Indication: ATRIAL FIBRILLATION
     Dosage: 60 MILLIGRAM
     Route: 065
     Dates: start: 20180609, end: 20180609
  4. DIGOXIN. [Concomitant]
     Active Substance: DIGOXIN
     Indication: ATRIAL FIBRILLATION
     Dosage: .125 MILLIGRAM
     Route: 065
     Dates: start: 20180529, end: 20180605
  5. PROGOR [Concomitant]
     Active Substance: DILTIAZEM HYDROCHLORIDE
     Indication: ATRIAL FIBRILLATION
     Dosage: 180 MILLIGRAM
     Route: 065
     Dates: start: 20180606, end: 20180607
  6. LYRICA [Concomitant]
     Active Substance: PREGABALIN
     Indication: PAIN PROPHYLAXIS
     Dosage: 75 MILLIGRAM
     Route: 065
     Dates: start: 20170206
  7. DEXAMETHASONE. [Suspect]
     Active Substance: DEXAMETHASONE
     Dosage: 20 MG
     Dates: start: 20180516, end: 20180606
  8. POMALIDOMIDE [Suspect]
     Active Substance: POMALIDOMIDE
     Dosage: 4 MG
     Route: 048
     Dates: start: 20180620, end: 20180710
  9. METHYLPREDNISOLONE. [Concomitant]
     Active Substance: METHYLPREDNISOLONE
     Dosage: 32 MILLIGRAM
     Route: 065
     Dates: start: 20180601, end: 20180604
  10. TIMOLOL. [Concomitant]
     Active Substance: TIMOLOL
     Indication: GLAUCOMA
     Dosage: UNK
     Route: 065
     Dates: start: 2015
  11. CYCLOPHOSPHAMIDE. [Concomitant]
     Active Substance: CYCLOPHOSPHAMIDE
     Indication: PRODUCT USED FOR UNKNOWN INDICATION
     Dosage: 50 MILLIGRAM
     Route: 065
     Dates: start: 20180321
  12. BEFACT [Concomitant]
     Indication: PAIN PROPHYLAXIS
     Dosage: 1 TABLET
     Route: 065
     Dates: start: 20170206
  13. BISOPROLOL [Concomitant]
     Active Substance: BISOPROLOL
     Dosage: 5 MILLIGRAM
     Route: 065
     Dates: start: 20180731
  14. INUVAIR [Concomitant]
     Active Substance: BECLOMETHASONE DIPROPIONATE\FORMOTEROL FUMARATE
     Indication: DYSPNOEA EXERTIONAL
     Dosage: UNK
     Route: 055
     Dates: start: 20160825
  15. AREDIA [Concomitant]
     Active Substance: PAMIDRONATE DISODIUM
     Dosage: 60 MILLIGRAM
     Route: 065
     Dates: start: 20180912
  16. METFORMIN [Concomitant]
     Active Substance: METFORMIN HYDROCHLORIDE
     Indication: DIABETES MELLITUS
     Dosage: 850 MILLIGRAM
     Route: 065
     Dates: start: 2015
  17. CALCIUM CARBONATE. [Concomitant]
     Active Substance: CALCIUM CARBONATE
     Indication: PROPHYLAXIS
     Dosage: 1.25 GRAM
     Route: 065
     Dates: start: 20160809
  18. DUOVENT [Concomitant]
     Active Substance: FENOTEROL HYDROBROMIDE
     Indication: DYSPNOEA EXERTIONAL
     Dosage: 2 OTHER
     Route: 065
     Dates: start: 20180404, end: 20180411
  19. ACICLOVIR [Concomitant]
     Active Substance: ACYCLOVIR
     Indication: ANTIVIRAL PROPHYLAXIS
     Dosage: 800 MILLIGRAM
     Route: 065
     Dates: start: 20150430
  20. OLMESARTAN MEDOXOMIL. [Concomitant]
     Active Substance: OLMESARTAN MEDOXOMIL
     Indication: HYPERTENSION
     Dosage: 40 MILLIGRAM
     Route: 065
     Dates: start: 1992
  21. NADROPARINE [Concomitant]
     Active Substance: NADROPARIN
     Indication: THROMBOSIS PROPHYLAXIS
     Dosage: .4 MILLILITER
     Route: 065
     Dates: start: 20180321, end: 20180525
  22. AMOXICILLIN W/CLAVULANIC ACID [Concomitant]
     Active Substance: AMOXICILLIN\CLAVULANIC ACID
     Indication: SPLINTER
     Dosage: 1750 MILLIGRAM
     Route: 065
     Dates: start: 20180427, end: 20180506
  23. TINZAPARIN [Concomitant]
     Active Substance: TINZAPARIN
     Indication: ATRIAL FIBRILLATION
     Dosage: 14000 IU (INTERNATIONAL UNIT)
     Route: 065
     Dates: start: 20180601
  24. DEXAMETHASONE. [Suspect]
     Active Substance: DEXAMETHASONE
     Indication: PLASMA CELL MYELOMA
     Dosage: 20 MG
     Route: 048
     Dates: start: 20180620, end: 20180710
  25. DEXAMETHASONE. [Suspect]
     Active Substance: DEXAMETHASONE
     Dosage: 20 MG
     Dates: start: 20180321, end: 20180411
  26. MAGNESIUM [Concomitant]
     Active Substance: MAGNESIUM
     Indication: PROPHYLAXIS
     Dosage: UNK
     Route: 065
     Dates: start: 20160809
  27. BISOPROLOL [Concomitant]
     Active Substance: BISOPROLOL
     Dosage: 2.5 MILLIGRAM
     Route: 065
     Dates: start: 20180609, end: 20180611
  28. PANTOMED [Concomitant]
     Indication: OESOPHAGITIS
     Dosage: 40 MILLIGRAM
     Route: 065
     Dates: start: 2015
  29. POMALIDOMIDE [Suspect]
     Active Substance: POMALIDOMIDE
     Dosage: 4 UNK
     Route: 048
     Dates: start: 20180516, end: 20180605
  30. NADROPARINE [Concomitant]
     Active Substance: NADROPARIN
     Indication: ATRIAL FIBRILLATION
     Dosage: .8 MILLILITER
     Route: 065
     Dates: start: 20180526, end: 20180531
  31. MS CONTIN [Concomitant]
     Active Substance: MORPHINE SULFATE
     Indication: PAIN PROPHYLAXIS
     Dosage: 10 MILLIGRAM
     Route: 065
     Dates: start: 20150430
  32. ASAFLOW [Concomitant]
     Active Substance: ASPIRIN
     Indication: HYPERCHOLESTEROLAEMIA
     Dosage: 80 MILLIGRAM
     Route: 065
     Dates: start: 1992
  33. EZETIMIBE. [Concomitant]
     Active Substance: EZETIMIBE
     Indication: HYPERCHOLESTEROLAEMIA
     Dosage: 10 MILLIGRAM
     Route: 065
     Dates: start: 1992
  34. AREDIA [Concomitant]
     Active Substance: PAMIDRONATE DISODIUM
     Indication: PROPHYLAXIS
     Dosage: 60 MG, 1 DOSE MONTHLY
     Route: 065
     Dates: start: 20180321, end: 20180428
  35. POMALIDOMIDE [Suspect]
     Active Substance: POMALIDOMIDE
     Indication: PLASMA CELL MYELOMA
     Dosage: 4 MG
     Route: 048
     Dates: start: 20180321, end: 20180410
  36. METHYLPREDNISOLONE. [Concomitant]
     Active Substance: METHYLPREDNISOLONE
     Indication: HYPERTENSION
     Dosage: 4 MILLIGRAM
     Route: 065
     Dates: start: 20180622, end: 20180626
  37. CYCLOPHOSPHAMIDE. [Concomitant]
     Active Substance: CYCLOPHOSPHAMIDE
     Dosage: UNK
     Route: 065
     Dates: start: 20161019, end: 20170508
  38. IMMUNOGLOBULINS NOS [Concomitant]
     Active Substance: IMMUNE GLOBULIN NOS
     Indication: HYPOGAMMAGLOBULINAEMIA
     Dosage: UNK
     Route: 065
     Dates: start: 20171120
  39. BISOPROLOL [Concomitant]
     Active Substance: BISOPROLOL
     Dosage: 7.5 MILLIGRAM
     Route: 065
     Dates: start: 20180612, end: 20180730
  40. METHYLPREDNISOLONE. [Concomitant]
     Active Substance: METHYLPREDNISOLONE
     Dosage: 16 MILLIGRAM
     Route: 065
     Dates: start: 20180609, end: 20180617
  41. METHYLPREDNISOLONE. [Concomitant]
     Active Substance: METHYLPREDNISOLONE
     Dosage: 24 MILLIGRAM
     Route: 065
     Dates: start: 20180605, end: 20180608
  42. THIAMAZOL [Concomitant]
     Active Substance: METHIMAZOLE
     Indication: HYPERTENSION
     Dosage: 20 MILLIGRAM
     Route: 065
     Dates: start: 20180530, end: 20180620
  43. CLONAZEPAM. [Concomitant]
     Active Substance: CLONAZEPAM
     Indication: PAIN PROPHYLAXIS
     Dosage: 2 DROPS
     Route: 065
     Dates: start: 20170206
  44. TRAVOPROST. [Concomitant]
     Active Substance: TRAVOPROST
     Indication: GLAUCOMA
     Dosage: UNK
     Route: 065
     Dates: start: 2015

REACTIONS (5)
  - Pneumonia [Recovered/Resolved]
  - Fatigue [Recovered/Resolved]
  - Acute coronary syndrome [Recovered/Resolved]
  - Rash maculo-papular [Recovered/Resolved]
  - Sepsis [Recovered/Resolved]

NARRATIVE: CASE EVENT DATE: 20180322
